FAERS Safety Report 5499784-3 (Version None)
Quarter: 2007Q4

REPORT INFORMATION
  Report Type: 
  Country: None (occurrence: None)
  Receive Date: 20071026
  Receipt Date: 20071016
  Transmission Date: 20080405
  Serious: Yes (Hospitalization, Other)
  Sender: FDA-Public Use
  Company Number: US-PFIZER INC-2007044705

PATIENT
  Sex: Female

DRUGS (1)
  1. CELEBREX [Suspect]
     Indication: ARTHRITIS

REACTIONS (7)
  - ANEURYSM [None]
  - ARTHRITIS [None]
  - CARDIOVASCULAR DISORDER [None]
  - DEPRESSION [None]
  - OSTEOARTHRITIS [None]
  - OSTEOPOROSIS [None]
  - VISION BLURRED [None]
